FAERS Safety Report 18261000 (Version 1)
Quarter: 2020Q3

REPORT INFORMATION
  Report Type: Spontaneous
  Country: GB (occurrence: GB)
  Receive Date: 20200914
  Receipt Date: 20200914
  Transmission Date: 20201103
  Serious: Yes (Other)
  Sender: FDA-Public Use
  Company Number: GB-TEVA-2020-GB-1826200

PATIENT
  Age: 33 Year
  Sex: Male

DRUGS (1)
  1. FLUCONAZOLE. [Suspect]
     Active Substance: FLUCONAZOLE
     Indication: TINEA VERSICOLOUR
     Dosage: 50MG
     Route: 048
     Dates: start: 20200727, end: 20200812

REACTIONS (4)
  - Mental impairment [Recovering/Resolving]
  - Depressed mood [Unknown]
  - Apathy [Unknown]
  - Anxiety [Unknown]

NARRATIVE: CASE EVENT DATE: 20200809
